FAERS Safety Report 6006737-5 (Version None)
Quarter: 2008Q4

REPORT INFORMATION
  Report Type: 
  Country: None (occurrence: None)
  Receive Date: 20081217
  Receipt Date: 20081205
  Transmission Date: 20090506
  Serious: Yes (Other)
  Sender: FDA-Public Use
  Company Number: JP-PFIZER INC-2008094602

PATIENT

DRUGS (7)
  1. SELARA [Suspect]
     Dosage: 50 MG, 1X/DAY
     Route: 048
     Dates: start: 20080930, end: 20081104
  2. ZESTRIL [Suspect]
     Indication: HYPERTENSION
     Dosage: UNK
     Route: 048
     Dates: start: 20080520, end: 20081104
  3. LIVALO [Suspect]
     Indication: HYPERCHOLESTEROLAEMIA
     Dosage: 2 MG, 1X/DAY
     Route: 048
     Dates: start: 20080930, end: 20081104
  4. LOSARTAN POTASSIUM AND HYDROCHLOROTHIAZIDE [Concomitant]
     Route: 048
     Dates: start: 20080520
  5. ARTIST [Concomitant]
     Route: 048
     Dates: start: 20080520
  6. ASPIRIN [Concomitant]
     Route: 048
     Dates: start: 20080129
  7. COMELIAN [Concomitant]
     Dosage: UNK
     Route: 048
     Dates: start: 20080124

REACTIONS (1)
  - RENAL FAILURE [None]
